FAERS Safety Report 8043690-7 (Version None)
Quarter: 2012Q1

REPORT INFORMATION
  Report Type: 
  Country: None (occurrence: None)
  Receive Date: 20120112
  Receipt Date: 20120109
  Transmission Date: 20120608
  Serious: Yes (Other)
  Sender: FDA-Public Use
  Company Number: IT-ROCHE-1028748

PATIENT
  Age: 38 Year
  Sex: Male

DRUGS (3)
  1. TRETINOIN [Suspect]
     Indication: ACUTE PROMYELOCYTIC LEUKAEMIA
     Route: 065
  2. PREDNISONE [Concomitant]
     Route: 065
  3. TRANEXAMIC ACID [Concomitant]
     Route: 065

REACTIONS (2)
  - RETINOIC ACID SYNDROME [None]
  - HEMIANOPIA [None]
